FAERS Safety Report 7802541 (Version 2)
Quarter: 2014Q1

REPORT INFORMATION
  Report Type: Spontaneous
  Country: GB (occurrence: GB)
  Receive Date: 20110207
  Receipt Date: 20140115
  Transmission Date: 20141002
  Serious: Yes (Hospitalization)
  Sender: FDA-Public Use
  Company Number: PHHY2011GB07244

PATIENT
  Age: 69 Year
  Sex: Female

DRUGS (5)
  1. RISPERIDONE [Suspect]
     Dosage: 4 MG
  2. VALPROATE SODIUM [Concomitant]
     Dosage: 1 G, ONCE/SINGLE
  3. PROCYCLIDINE [Concomitant]
     Dosage: 10 MG, ONCE/SINGLE
  4. IBUPROFEN [Concomitant]
     Dosage: 800 MG, ONCE/SINGLE AT NIGHT
  5. LOFEPRAMINE [Concomitant]
     Dosage: 70 MG, ONCE/SINGLE AT NIGHT

REACTIONS (14)
  - Atrial flutter [Recovered/Resolved]
  - Palpitations [Recovered/Resolved]
  - Heart rate increased [Unknown]
  - Toxicity to various agents [Recovered/Resolved]
  - Renal impairment [Recovered/Resolved]
  - Bacterial infection [Recovered/Resolved]
  - Photosensitivity reaction [Recovered/Resolved]
  - Rash [Recovered/Resolved]
  - Rash erythematous [Recovered/Resolved]
  - Exfoliative rash [Recovered/Resolved]
  - Blister [Recovering/Resolving]
  - Malaise [Recovered/Resolved]
  - Body temperature decreased [Unknown]
  - Blood pressure decreased [Unknown]
